FAERS Safety Report 9583871 (Version 2)
Quarter: 2013Q4

REPORT INFORMATION
  Report Type: Spontaneous
  Country: US (occurrence: US)
  Receive Date: 20131002
  Receipt Date: 20131002
  Transmission Date: 20140711
  Serious: No
  Sender: FDA-Public Use
  Company Number: US-AMGEN-USASP2013046359

PATIENT
  Age: 49 Year
  Sex: Female
  Weight: 49.89 kg

DRUGS (3)
  1. ENBREL [Suspect]
     Indication: PSORIASIS
     Dosage: 50 MG, WEEKLY
     Route: 058
     Dates: start: 20100329, end: 20100405
  2. METOPROLOL [Concomitant]
     Dosage: 10 MG, QD
     Route: 048
  3. TOPROL [Concomitant]
     Dosage: UNK

REACTIONS (5)
  - Rash generalised [Unknown]
  - Injection site extravasation [Recovered/Resolved]
  - Injection site oedema [Recovered/Resolved]
  - Injection site erythema [Recovered/Resolved]
  - Injection site pain [Recovered/Resolved]
